FAERS Safety Report 9127037 (Version 3)
Quarter: 2013Q2

REPORT INFORMATION
  Report Type: Spontaneous
  Country: JP (occurrence: JP)
  Receive Date: 20130228
  Receipt Date: 20130401
  Transmission Date: 20140414
  Serious: Yes (Death, Hospitalization)
  Sender: FDA-Public Use
  Company Number: PHHY2013JP011630

PATIENT
  Age: 64 Year
  Sex: Male
  Weight: 56 kg

DRUGS (14)
  1. CERTICAN [Suspect]
     Indication: RENAL TRANSPLANT
     Dosage: 1 UNK, FOR STARTING 10 DAYS
     Dates: start: 20120912
  2. CERTICAN [Suspect]
     Dosage: 0.75 TO 1.5 MG DAILY
     Route: 048
     Dates: start: 201209, end: 20130205
  3. NEORAL [Suspect]
     Indication: RENAL TRANSPLANT
     Dosage: 7 MG/KG, QD
     Route: 048
     Dates: start: 20120912, end: 20130205
  4. MIZORIBINE [Suspect]
     Indication: RENAL TRANSPLANT
     Dosage: 300 MG, QD
     Route: 048
     Dates: start: 20120912
  5. SIMULECT [Concomitant]
     Indication: RENAL TRANSPLANT
     Dosage: 20 MG, UNK
     Route: 048
     Dates: start: 20120912, end: 20120916
  6. ADRENAL CORTEX PREPARATIONS [Concomitant]
     Indication: RENAL TRANSPLANT
     Dosage: UNK UKN, UNK
  7. PROGRAF [Concomitant]
     Indication: RENAL TRANSPLANT
     Dosage: UNK UKN, UNK
     Route: 048
     Dates: start: 20130205
  8. CORTICOSTEROIDS [Concomitant]
     Indication: RENAL TRANSPLANT
     Dosage: 50 MG, UNK
     Dates: start: 20120912
  9. CORTICOSTEROIDS [Concomitant]
     Dosage: 40 MG, UNK
  10. CORTICOSTEROIDS [Concomitant]
     Dosage: 30 MG, UNK
  11. CORTICOSTEROIDS [Concomitant]
     Dosage: 20 MG, UNK
  12. CORTICOSTEROIDS [Concomitant]
     Dosage: 10 MG, UNK
  13. CORTICOSTEROIDS [Concomitant]
     Dosage: 5 MG, UNK
  14. WARFARIN [Concomitant]
     Dosage: UNK UKN, UNK

REACTIONS (4)
  - Hepatitis fulminant [Fatal]
  - Liver function test abnormal [Fatal]
  - Metastases to liver [Fatal]
  - Immunosuppressant drug level increased [Unknown]
